FAERS Safety Report 7909023-9 (Version None)
Quarter: 2011Q4

REPORT INFORMATION
  Report Type: 
  Country: None (occurrence: None)
  Receive Date: 20111111
  Receipt Date: 20110405
  Transmission Date: 20120403
  Serious: No
  Sender: FDA-Public Use
  Company Number: US-BAYER-2011-030020

PATIENT
  Age: 49 Year
  Sex: Female

DRUGS (1)
  1. CLIMARA [Suspect]
     Indication: HOT FLUSH
     Dosage: 100 MCG/24HR, UNK
     Route: 061
     Dates: start: 20110301

REACTIONS (3)
  - PRODUCT ADHESION ISSUE [None]
  - ABDOMINAL DISTENSION [None]
  - INCREASED APPETITE [None]
